FAERS Safety Report 6767034-3 (Version None)
Quarter: 2010Q2

REPORT INFORMATION
  Report Type: 
  Country: None (occurrence: None)
  Receive Date: 20100611
  Receipt Date: 20100602
  Transmission Date: 20101027
  Serious: Yes (Hospitalization)
  Sender: FDA-Public Use
  Company Number: JP-MERCK-0908USA03832

PATIENT
  Age: 49 Year
  Sex: Female
  Weight: 45 kg

DRUGS (2)
  1. DECADRON [Suspect]
     Indication: PREMEDICATION
     Dosage: DOSING FREQUENCY UNKNOWN
     Route: 048
     Dates: end: 20080730
  2. PACLITAXEL [Suspect]
     Indication: BREAST CANCER
     Route: 041
     Dates: start: 20080701, end: 20080730

REACTIONS (1)
  - DIABETIC KETOACIDOSIS [None]
